FAERS Safety Report 24096984 (Version 1)
Quarter: 2024Q3

REPORT INFORMATION
  Report Type: Spontaneous
  Country: US (occurrence: US)
  Receive Date: 20240716
  Receipt Date: 20240716
  Transmission Date: 20241017
  Serious: No
  Sender: GRIFOLS
  Company Number: US-IGSA-BIG0027494

PATIENT
  Age: 34 Year
  Sex: Female

DRUGS (8)
  1. GAMUNEX-C [Suspect]
     Active Substance: HUMAN IMMUNOGLOBULIN G
     Indication: Immunodeficiency common variable
     Dosage: 12 GRAM, Q.WK.
     Route: 058
  2. GAMUNEX-C [Suspect]
     Active Substance: HUMAN IMMUNOGLOBULIN G
     Dosage: 12 GRAM, Q.WK.
     Route: 058
     Dates: start: 202401
  3. DUPIXENT [Concomitant]
     Active Substance: DUPILUMAB
     Dosage: 300 MILLIGRAM
  4. ALBUTEROL SULFATE [Concomitant]
     Active Substance: ALBUTEROL SULFATE
  5. IPRATROPIUM [Concomitant]
     Active Substance: IPRATROPIUM
  6. PULMICORT TURBUHALER [Concomitant]
     Active Substance: BUDESONIDE
     Dosage: 1 MILLIGRAM
  7. XOPENEX [Concomitant]
     Active Substance: LEVALBUTEROL HYDROCHLORIDE
     Dosage: 1.25 MILLIGRAM
  8. YUPELRI [Concomitant]
     Active Substance: REVEFENACIN

REACTIONS (14)
  - Inadequate diet [Unknown]
  - Respiratory tract infection [Unknown]
  - Sinusitis [Unknown]
  - Administration site bruise [Unknown]
  - Injection site mass [Unknown]
  - Dilated pores [Unknown]
  - Infusion site rash [Unknown]
  - Infusion site warmth [Unknown]
  - Influenza [Unknown]
  - Headache [Unknown]
  - Fatigue [Unknown]
  - Somnolence [Unknown]
  - Intentional dose omission [Unknown]
  - Malaise [Unknown]

NARRATIVE: CASE EVENT DATE: 20240319
